FAERS Safety Report 6523667-0 (Version None)
Quarter: 2009Q4

REPORT INFORMATION
  Report Type: 
  Country: None (occurrence: None)
  Receive Date: 20091231
  Receipt Date: 20091223
  Transmission Date: 20100525
  Serious: Yes (Hospitalization, Other)
  Sender: FDA-Public Use
  Company Number: GB-ASTRAZENECA-2009SE33394

PATIENT
  Age: 48 Year
  Sex: Female

DRUGS (9)
  1. LOSEC [Suspect]
     Indication: PROPHYLAXIS AGAINST GASTROINTESTINAL ULCER
     Route: 048
     Dates: start: 20091121, end: 20091121
  2. LOSEC [Suspect]
     Indication: DYSPEPSIA
     Route: 048
     Dates: start: 20091121, end: 20091121
  3. OMEPRAZOLE SODIUM FOR INJECTION [Suspect]
     Route: 042
  4. CARBAMAZEPINE [Concomitant]
     Indication: EPILEPSY
  5. CETRIZINE [Concomitant]
     Indication: NAUSEA
  6. CO-CODAMOL [Concomitant]
     Indication: PAIN
  7. CYCLIZINE [Concomitant]
     Indication: NAUSEA
  8. LEVETIRACETAM [Concomitant]
     Indication: EPILEPSY
     Route: 048
  9. LEVETIRACETAM [Concomitant]
     Indication: MOOD SWINGS
     Route: 048

REACTIONS (1)
  - JOINT SWELLING [None]
